FAERS Safety Report 26091138 (Version 1)
Quarter: 2025Q4

REPORT INFORMATION
  Report Type: Report from Study
  Country: EU (occurrence: EU)
  Receive Date: 20251126
  Receipt Date: 20251126
  Transmission Date: 20260117
  Serious: Yes (Hospitalization)
  Sender: ABBVIE
  Company Number: EU-ABBVIE-6563341

PATIENT
  Age: 64 Year
  Sex: Female

DRUGS (2)
  1. FOSCARBIDOPA\FOSLEVODOPA [Suspect]
     Active Substance: FOSCARBIDOPA\FOSLEVODOPA
     Indication: Product used for unknown indication
     Dosage: HIGH FLOW RATE: 0.75ML/H, BASE FLOW RATE: 0.63ML/H, LOW FLOW RATE: 0.35ML/H
     Route: 058
     Dates: start: 20250924
  2. CLOZAPINE [Concomitant]
     Active Substance: CLOZAPINE
     Indication: Product used for unknown indication
     Dosage: LAST ADMIN DATE: NOV 2025

REACTIONS (1)
  - Delusional disorder, unspecified type [Not Recovered/Not Resolved]

NARRATIVE: CASE EVENT DATE: 20250101
